FAERS Safety Report 25026016 (Version 2)
Quarter: 2025Q1

REPORT INFORMATION
  Report Type: Report from Study
  Country: US (occurrence: US)
  Receive Date: 20250301
  Receipt Date: 20250329
  Transmission Date: 20250409
  Serious: Yes (Other)
  Sender: ABBVIE
  Company Number: US-ABBVIE-6150811

PATIENT
  Sex: Female

DRUGS (1)
  1. HUMIRA [Suspect]
     Active Substance: ADALIMUMAB
     Indication: Rheumatoid arthritis
     Route: 058
     Dates: start: 20201029

REACTIONS (5)
  - Internal haemorrhage [Unknown]
  - Oesophageal infection [Unknown]
  - Haemoglobin decreased [Unknown]
  - Hereditary haemorrhagic telangiectasia [Unknown]
  - Arteriovenous malformation [Unknown]
